FAERS Safety Report 7794590-9 (Version None)
Quarter: 2011Q4

REPORT INFORMATION
  Report Type: 
  Country: None (occurrence: None)
  Receive Date: 20111004
  Receipt Date: 20110921
  Transmission Date: 20120403
  Serious: Yes (Hospitalization)
  Sender: FDA-Public Use
  Company Number: DE-ELI_LILLY_AND_COMPANY-DE201106005969

PATIENT
  Sex: Male

DRUGS (10)
  1. TORSEMIDE [Concomitant]
  2. AXURA [Concomitant]
  3. ALLOPURINOL [Concomitant]
     Dosage: 300 UNK, UNK
  4. CALCIUM CARBONATE [Concomitant]
  5. VITAMIN D [Concomitant]
  6. MARCUMAR [Concomitant]
  7. FORTEO [Suspect]
     Indication: OSTEOPOROSIS
     Dosage: UNK, DAILY (1/D)
     Route: 058
     Dates: start: 20110325, end: 20110101
  8. EFEROX [Concomitant]
     Dosage: 150 UNK, UNK
  9. FORTEO [Suspect]
     Dosage: UNK, QD
     Route: 058
     Dates: start: 20110101
  10. HCT BETA [Concomitant]

REACTIONS (5)
  - PAIN [None]
  - HEART RATE DECREASED [None]
  - DYSPNOEA [None]
  - OEDEMA PERIPHERAL [None]
  - GOUT [None]
